FAERS Safety Report 6310216-5 (Version None)
Quarter: 2009Q3

REPORT INFORMATION
  Report Type: 
  Country: None (occurrence: None)
  Receive Date: 20090814
  Receipt Date: 20090806
  Transmission Date: 20100115
  Serious: Yes (Hospitalization)
  Sender: FDA-Public Use
  Company Number: DE-ABBOTT-09P-062-0590132-00

PATIENT
  Sex: Male

DRUGS (9)
  1. NIASPAN [Suspect]
     Indication: ARTERIOSCLEROSIS CORONARY ARTERY
     Route: 048
     Dates: start: 20080201
  2. NIASPAN [Suspect]
     Indication: PROPHYLAXIS
  3. BISOPROLOL [Concomitant]
     Indication: CORONARY ARTERY DISEASE
  4. BISOPROLOL [Concomitant]
     Indication: HYPERTENSION
  5. RAMIPROL [Concomitant]
     Indication: CORONARY ARTERY DISEASE
  6. RAMIPROL [Concomitant]
     Indication: HYPERTENSION
  7. AMLODIPINE [Concomitant]
     Indication: HYPERTENSION
  8. ASPIRIN [Concomitant]
     Indication: CORONARY ARTERY DISEASE
  9. SIMVASTATIN [Concomitant]
     Indication: CORONARY ARTERY DISEASE

REACTIONS (2)
  - DIABETES MELLITUS [None]
  - DIZZINESS [None]
